FAERS Safety Report 7798333-4 (Version None)
Quarter: 2011Q4

REPORT INFORMATION
  Report Type: 
  Country: None (occurrence: None)
  Receive Date: 20111005
  Receipt Date: 20110923
  Transmission Date: 20120403
  Serious: Yes (Other)
  Sender: FDA-Public Use
  Company Number: TR-ELI_LILLY_AND_COMPANY-TR201109007108

PATIENT
  Age: 47 Year
  Sex: Female

DRUGS (2)
  1. BYETTA [Suspect]
     Indication: DIABETES MELLITUS
     Dosage: 10 UG, BID
     Route: 058
     Dates: start: 20110620
  2. GLIFOR [Concomitant]
     Dosage: UNK, BID
     Route: 048

REACTIONS (1)
  - BLOOD GLUCOSE INCREASED [None]
